FAERS Safety Report 4656802-X (Version None)
Quarter: 2005Q2

REPORT INFORMATION
  Report Type: 
  Country: None (occurrence: None)
  Receive Date: 20050506
  Receipt Date: 20050425
  Transmission Date: 20051028
  Serious: Yes (Hospitalization)
  Sender: FDA-Public Use
  Company Number: 05P-062-0292732-00

PATIENT
  Age: 71 Year
  Sex: Female
  Weight: 81 kg

DRUGS (8)
  1. HUMIRA [Suspect]
     Indication: RHEUMATOID ARTHRITIS
     Dosage: 40 MG, 1 IN 2 WK, SUBCUTANEOUS
     Route: 058
     Dates: start: 20041126, end: 20050121
  2. ESOMEPRAZOLE [Concomitant]
  3. AMLODIPINE BESYLATE [Concomitant]
  4. METOPROLOL SUCCINATE [Concomitant]
  5. HYZAAR [Concomitant]
  6. PREDNISOLONE [Concomitant]
  7. ACEMETACIN [Concomitant]
  8. ACETYL SALICYLIC ACID USP BAT [Concomitant]

REACTIONS (14)
  - ANAEMIA [None]
  - ANOREXIA [None]
  - BENIGN GASTROINTESTINAL NEOPLASM [None]
  - BLOOD URINE PRESENT [None]
  - CHILLS [None]
  - DIVERTICULITIS [None]
  - ENTEROVESICAL FISTULA [None]
  - FALL [None]
  - HYPERTENSION [None]
  - INTESTINAL SPASM [None]
  - INTESTINAL STENOSIS [None]
  - NAUSEA [None]
  - PYURIA [None]
  - REFUSAL OF TREATMENT BY PATIENT [None]
